FAERS Safety Report 13215003 (Version 8)
Quarter: 2018Q1

REPORT INFORMATION
  Report Type: Report from Study
  Country: US (occurrence: US)
  Receive Date: 20170210
  Receipt Date: 20180226
  Transmission Date: 20180508
  Serious: Yes (Death, Life-Threatening, Hospitalization, Other)
  Sender: FDA-Public Use
  Company Number: US-INCYTE CORPORATION-2017IN000656

PATIENT

DRUGS (24)
  1. SODIUM CHLORIDE. [Concomitant]
     Active Substance: SODIUM CHLORIDE
     Indication: ACUTE KIDNEY INJURY
     Dosage: 100 ML, QH
     Dates: start: 20160522, end: 20160623
  2. HYDROXYUREA. [Concomitant]
     Active Substance: HYDROXYUREA
     Dosage: 1500 MG, QD
     Dates: start: 20150306, end: 20150404
  3. METFORMIN [Concomitant]
     Active Substance: METFORMIN HYDROCHLORIDE
     Indication: DIABETES MELLITUS
     Dosage: 1000 MG, BID
     Dates: start: 2005
  4. DEXLANSOPRAZOLE [Concomitant]
     Active Substance: DEXLANSOPRAZOLE
     Indication: GASTROOESOPHAGEAL REFLUX DISEASE
     Dosage: 60 MG, QD
     Dates: start: 2010
  5. METOPROLOL TARTRATE. [Concomitant]
     Active Substance: METOPROLOL TARTRATE
     Indication: HYPERTENSION
     Dosage: 50 MG, BID
     Dates: start: 2014, end: 20160505
  6. INVANZ [Concomitant]
     Active Substance: ERTAPENEM SODIUM
     Indication: SEPSIS
     Dosage: 1 G, QD
     Dates: start: 20161104, end: 20161105
  7. PIPERACILLIN AND TAZOBACTAM [Concomitant]
     Active Substance: PIPERACILLIN SODIUM\TAZOBACTAM SODIUM
     Indication: SEPSIS
     Dosage: 3,375 G, EVERY 8 HR
     Dates: start: 20161102, end: 20161102
  8. AMLODIPINE [Concomitant]
     Active Substance: AMLODIPINE BESYLATE
     Indication: HYPERTENSION
     Dosage: 10 MG, QD
     Dates: start: 1999
  9. HYDROXYUREA. [Concomitant]
     Active Substance: HYDROXYUREA
     Indication: POLYCYTHAEMIA VERA
     Dosage: 1000 MG, QD
     Dates: start: 20150102, end: 20150305
  10. LOSARTAN AND HYDROCHLOROTHIAZIDE [Concomitant]
     Active Substance: HYDROCHLOROTHIAZIDE\LOSARTAN POTASSIUM
     Indication: HYPERTENSION
     Dosage: 100-25 MG, QD
     Dates: start: 2013
  11. PROCRIT [Concomitant]
     Active Substance: ERYTHROPOIETIN
     Dosage: 60,000, EVERY WEEK
     Dates: start: 20161004, end: 20161122
  12. GABAPENTIN. [Concomitant]
     Active Substance: GABAPENTIN
     Indication: NEUROPATHY PERIPHERAL
     Dosage: 300 MG, BID
     Dates: start: 2007
  13. METOPROLOL SUCCINATE. [Concomitant]
     Active Substance: METOPROLOL SUCCINATE
     Indication: HYPERTENSION
     Dosage: 50 MG, QD
     Dates: start: 20160505
  14. JAKAFI [Suspect]
     Active Substance: RUXOLITINIB
     Indication: POLYCYTHAEMIA VERA
     Dosage: 5 MG, BID
     Route: 048
     Dates: start: 20160617
  15. GLIMEPIRIDE. [Concomitant]
     Active Substance: GLIMEPIRIDE
     Indication: DIABETES MELLITUS
     Dosage: 2 MG, BID
     Dates: start: 2005
  16. INSULIN GLARGINE [Concomitant]
     Active Substance: INSULIN GLARGINE
     Indication: DIABETES MELLITUS
     Dosage: 100 UNIT/ML, QD
     Dates: start: 2005
  17. MEROPENEM. [Concomitant]
     Active Substance: MEROPENEM
     Indication: SEPSIS
     Dosage: 500 MG, Q 6 HR
     Dates: start: 20161102, end: 20161104
  18. ONDANSETRON [Concomitant]
     Active Substance: ONDANSETRON
     Indication: NAUSEA
     Dosage: 4 MG, PRN
     Dates: start: 2016
  19. SIMVASTIN [Concomitant]
     Active Substance: SIMVASTATIN
     Indication: HYPERLIPIDAEMIA
     Dosage: 20 MG, QD
     Dates: start: 2005
  20. ROCEPHIN [Concomitant]
     Active Substance: CEFTRIAXONE SODIUM
     Indication: URINARY TRACT INFECTION
     Dosage: 1 G, QD
     Dates: start: 20161031, end: 20161101
  21. PROCRIT [Concomitant]
     Active Substance: ERYTHROPOIETIN
     Indication: ANAEMIA
     Dosage: 10000 UNITS, 3 TIMES PER WEEK
     Dates: start: 20160617, end: 20160814
  22. ASPIRIN                            /00002701/ [Concomitant]
     Active Substance: ASPIRIN
     Indication: POLYCYTHAEMIA VERA
     Dosage: 81 MG, QD
     Dates: start: 1995
  23. HYDROXYUREA. [Concomitant]
     Active Substance: HYDROXYUREA
     Dosage: 1000 MG, QOD
     Dates: start: 20150405, end: 20160420
  24. VANCOMYCIN [Concomitant]
     Active Substance: VANCOMYCIN
     Indication: SEPSIS
     Dosage: 1500 MG, QD
     Dates: start: 20161105, end: 20161106

REACTIONS (21)
  - Anaemia [Recovered/Resolved]
  - Platelet count decreased [Recovered/Resolved]
  - Platelet count decreased [Recovered/Resolved]
  - Hypoglycaemia [Recovered/Resolved]
  - Platelet count decreased [Not Recovered/Not Resolved]
  - Blood creatinine increased [Recovered/Resolved]
  - Blood creatinine increased [Not Recovered/Not Resolved]
  - Anaemia [Recovered/Resolved]
  - Platelet count decreased [Recovered/Resolved]
  - Back pain [Not Recovered/Not Resolved]
  - Anaemia [Recovered/Resolved]
  - Sepsis [Not Recovered/Not Resolved]
  - Ecchymosis [Recovered/Resolved]
  - Anaemia [Not Recovered/Not Resolved]
  - Blood creatinine increased [Recovered/Resolved]
  - Platelet count decreased [Recovered/Resolved]
  - Pneumonia bacterial [Fatal]
  - Anaemia [Recovered/Resolved]
  - Platelet count decreased [Recovered/Resolved]
  - Blood creatinine increased [Recovered/Resolved]
  - Urinary tract infection [Recovered/Resolved]

NARRATIVE: CASE EVENT DATE: 20160711
